FAERS Safety Report 12607469 (Version 5)
Quarter: 2017Q1

REPORT INFORMATION
  Report Type: Spontaneous
  Country: US (occurrence: US)
  Receive Date: 20160729
  Receipt Date: 20170317
  Transmission Date: 20170428
  Serious: Yes (Other)
  Sender: FDA-Public Use
  Company Number: US-PFIZER INC-2016359172

PATIENT
  Age: 56 Year
  Sex: Female

DRUGS (3)
  1. XELJANZ [Suspect]
     Active Substance: TOFACITINIB CITRATE
     Indication: RHEUMATOID ARTHRITIS
     Dosage: 5 MG, 2X/DAY
     Route: 048
     Dates: start: 20160713
  2. VERAPAMIL [Concomitant]
     Active Substance: VERAPAMIL HYDROCHLORIDE
     Dosage: UNK
  3. BENAZEPRIL HCL [Concomitant]
     Active Substance: BENAZEPRIL HYDROCHLORIDE
     Dosage: UNK

REACTIONS (10)
  - Renal pain [Unknown]
  - Back pain [Unknown]
  - Drug ineffective [Unknown]
  - Renal disorder [Unknown]
  - Flank pain [Unknown]
  - Peripheral swelling [Unknown]
  - Abdominal pain [Unknown]
  - Hypertension [Unknown]
  - Nausea [Unknown]
  - Breast pain [Unknown]

NARRATIVE: CASE EVENT DATE: 20160722
